FAERS Safety Report 18555511 (Version 1)
Quarter: 2020Q4

REPORT INFORMATION
  Report Type: Spontaneous
  Country: US (occurrence: US)
  Receive Date: 20201127
  Receipt Date: 20201127
  Transmission Date: 20210114
  Serious: No
  Sender: FDA-Public Use
  Company Number: US-SA-2020SA336995

PATIENT

DRUGS (2)
  1. LENVIMA [Concomitant]
     Active Substance: LENVATINIB
  2. THYROGEN [Suspect]
     Active Substance: THYROTROPIN ALFA
     Dosage: 0.9 MG, QD
     Route: 030

REACTIONS (1)
  - Hypertension [Not Recovered/Not Resolved]
